FAERS Safety Report 8406407-X (Version None)
Quarter: 2012Q2

REPORT INFORMATION
  Report Type: 
  Country: None (occurrence: None)
  Receive Date: 20120604
  Receipt Date: 20120525
  Transmission Date: 20120825
  Serious: Yes (Other)
  Sender: FDA-Public Use
  Company Number: US-US-EMD SERONO, INC.-7087715

PATIENT
  Sex: Male

DRUGS (3)
  1. AMLODIPINE [Concomitant]
  2. EGRIFTA [Suspect]
     Indication: LIPODYSTROPHY ACQUIRED
     Dates: start: 20110801
  3. LISINOPRIL [Concomitant]

REACTIONS (13)
  - ASTHENIA [None]
  - ANXIETY [None]
  - INSOMNIA [None]
  - DEPRESSION [None]
  - WEIGHT INCREASED [None]
  - PAIN [None]
  - BLOOD PRESSURE INCREASED [None]
  - FATIGUE [None]
  - DIARRHOEA [None]
  - DIZZINESS [None]
  - PALPITATIONS [None]
  - NASAL SEPTUM DEVIATION [None]
  - HYPERSOMNIA [None]
